FAERS Safety Report 6387864-X (Version None)
Quarter: 2009Q3

REPORT INFORMATION
  Report Type: 
  Country: None (occurrence: None)
  Receive Date: 20090930
  Receipt Date: 20090914
  Transmission Date: 20100115
  Serious: Yes (Death, Hospitalization, Disabling)
  Sender: FDA-Public Use
  Company Number: 2009AL003852

PATIENT
  Age: 61 Year
  Sex: Female

DRUGS (24)
  1. DIGOXIN [Suspect]
     Dosage: 0.25MG, PO
     Route: 048
  2. COUMADIN [Concomitant]
  3. LOVENOX [Concomitant]
  4. PROMETHAZINE [Concomitant]
  5. TRIMETHOBENZAMIDE HCL [Concomitant]
  6. ALBUTEROL [Concomitant]
  7. HYZAAR [Concomitant]
  8. LASIX [Concomitant]
  9. POTASSIUM CHLORIDE [Concomitant]
  10. COLACE [Concomitant]
  11. FERGON [Concomitant]
  12. TYLENOL (CAPLET) [Concomitant]
  13. NASONEX [Concomitant]
  14. ACIPHEX [Concomitant]
  15. RANEXA [Concomitant]
  16. METOLAZONE [Concomitant]
  17. FEXOFENADINE [Concomitant]
  18. HYDROCODONE [Concomitant]
  19. TOPROL-XL [Concomitant]
  20. ASTELIN [Concomitant]
  21. COZAAR [Concomitant]
  22. TAGAMET [Concomitant]
  23. WARFARIN SODIUM [Concomitant]
  24. COZAARFERGON [Concomitant]

REACTIONS (11)
  - ABDOMINAL PAIN [None]
  - ACUTE MYOCARDIAL INFARCTION [None]
  - ATRIAL FIBRILLATION [None]
  - CEREBROVASCULAR ACCIDENT [None]
  - DIZZINESS POSTURAL [None]
  - FLUID RETENTION [None]
  - NAUSEA [None]
  - OEDEMA PERIPHERAL [None]
  - POSTNASAL DRIP [None]
  - VOMITING [None]
  - WHEEZING [None]
